FAERS Safety Report 20151527 (Version 1)
Quarter: 2021Q4

REPORT INFORMATION
  Report Type: Spontaneous
  Country: US (occurrence: US)
  Receive Date: 20211206
  Receipt Date: 20211206
  Transmission Date: 20220304
  Serious: No
  Sender: FDA-Public Use
  Company Number: US-TEVA-2021-US-1979879

PATIENT
  Sex: Male

DRUGS (1)
  1. PROAIR HFA [Suspect]
     Active Substance: ALBUTEROL SULFATE
     Dosage: INHALATION
     Route: 065

REACTIONS (5)
  - Product lot number issue [Unknown]
  - Product container seal issue [Unknown]
  - Chest pain [Unknown]
  - Chest discomfort [Unknown]
  - Expired product administered [Unknown]
